FAERS Safety Report 19408358 (Version 1)
Quarter: 2021Q2

REPORT INFORMATION
  Report Type: Spontaneous
  Country: US (occurrence: US)
  Receive Date: 20210612
  Receipt Date: 20210612
  Transmission Date: 20210717
  Serious: Yes (Hospitalization)
  Sender: FDA-Public Use
  Company Number: US-TEVA-2021-US-1921294

PATIENT

DRUGS (4)
  1. ALBUTEROL SULFATE HFA INHALATION AEROSOL [Suspect]
     Active Substance: ALBUTEROL SULFATE
     Indication: COUGH
  2. ALBUTEROL SULFATE HFA INHALATION AEROSOL [Suspect]
     Active Substance: ALBUTEROL SULFATE
     Indication: DYSPNOEA
  3. ALBUTEROL SULFATE HFA INHALATION AEROSOL [Suspect]
     Active Substance: ALBUTEROL SULFATE
     Indication: WHEEZING
  4. ALBUTEROL SULFATE HFA INHALATION AEROSOL [Suspect]
     Active Substance: ALBUTEROL SULFATE
     Indication: ASTHMA
     Route: 065
     Dates: start: 2021

REACTIONS (3)
  - Device failure [Unknown]
  - Asthma [Unknown]
  - Gait disturbance [Unknown]

NARRATIVE: CASE EVENT DATE: 2021
